FAERS Safety Report 21450368 (Version 3)
Quarter: 2022Q4

REPORT INFORMATION
  Report Type: Spontaneous
  Country: JP (occurrence: JP)
  Receive Date: 20221013
  Receipt Date: 20221209
  Transmission Date: 20230112
  Serious: Yes (Hospitalization, Other)
  Sender: FDA-Public Use
  Company Number: JP-BEH-2022150827

PATIENT
  Sex: Female

DRUGS (11)
  1. ALBUMINAR-5 [Suspect]
     Active Substance: ALBUMIN HUMAN
     Indication: Ruptured ectopic pregnancy
     Dosage: 500 MILLILITER
     Route: 065
  2. ALBUMINAR-5 [Suspect]
     Active Substance: ALBUMIN HUMAN
     Indication: Haemorrhage
  3. ALBUMINAR-5 [Suspect]
     Active Substance: ALBUMIN HUMAN
     Indication: Hypovolaemic shock
  4. HUMAN RED BLOOD CELL [Concomitant]
     Active Substance: HUMAN RED BLOOD CELL
     Indication: Ruptured ectopic pregnancy
     Dosage: 6 UNITS
     Route: 065
  5. HUMAN RED BLOOD CELL [Concomitant]
     Active Substance: HUMAN RED BLOOD CELL
     Indication: Haemorrhage
     Dosage: 4 UNITS
     Route: 065
  6. HUMAN RED BLOOD CELL [Concomitant]
     Active Substance: HUMAN RED BLOOD CELL
     Indication: Hypovolaemic shock
  7. HUMAN PLASMA [Concomitant]
     Active Substance: HUMAN PLASMA
     Indication: Ruptured ectopic pregnancy
     Dosage: 6 UNITS
     Route: 065
  8. HUMAN PLASMA [Concomitant]
     Active Substance: HUMAN PLASMA
     Indication: Haemorrhage
     Dosage: 6 UNITS
     Route: 065
  9. HUMAN PLASMA [Concomitant]
     Active Substance: HUMAN PLASMA
     Indication: Hypovolaemic shock
  10. OXYGEN [Concomitant]
     Active Substance: OXYGEN
     Indication: Oxygen saturation decreased
     Dosage: VIA 5 L MASK
     Route: 065
  11. OXYGEN [Concomitant]
     Active Substance: OXYGEN
     Dosage: VIA 10 L MASK
     Route: 065

REACTIONS (4)
  - Transfusion-related acute lung injury [Recovered/Resolved]
  - Wheezing [Recovered/Resolved]
  - Oxygen saturation decreased [Recovered/Resolved]
  - Respiration abnormal [Recovered/Resolved]
